FAERS Safety Report 24902576 (Version 2)
Quarter: 2025Q1

REPORT INFORMATION
  Report Type: Report from Study
  Country: KR (occurrence: KR)
  Receive Date: 20250130
  Receipt Date: 20250206
  Transmission Date: 20250408
  Serious: Yes (Hospitalization)
  Sender: SUNOVION
  Company Number: KR-BIAL-BIAL-17337

PATIENT

DRUGS (57)
  1. ESLICARBAZEPINE ACETATE [Suspect]
     Active Substance: ESLICARBAZEPINE ACETATE
     Indication: Epilepsy
     Dosage: 400 MILLIGRAM, QD
     Route: 048
     Dates: start: 20240528, end: 20240528
  2. ESLICARBAZEPINE ACETATE [Suspect]
     Active Substance: ESLICARBAZEPINE ACETATE
     Dosage: 500 MILLIGRAM, QD
     Route: 048
     Dates: start: 20240529, end: 20240724
  3. ESLICARBAZEPINE ACETATE [Suspect]
     Active Substance: ESLICARBAZEPINE ACETATE
     Dosage: 600 MILLIGRAM, QD
     Route: 048
     Dates: start: 20240725, end: 20241103
  4. ESLICARBAZEPINE ACETATE [Suspect]
     Active Substance: ESLICARBAZEPINE ACETATE
     Dosage: 800 MG, QD
     Route: 048
     Dates: start: 20241104, end: 20241109
  5. ESLICARBAZEPINE ACETATE [Suspect]
     Active Substance: ESLICARBAZEPINE ACETATE
     Dosage: 1000 MG, QD
     Route: 048
     Dates: start: 20241110, end: 20241111
  6. ESLICARBAZEPINE ACETATE [Suspect]
     Active Substance: ESLICARBAZEPINE ACETATE
     Dosage: 800 MG, QD
     Route: 048
     Dates: start: 20241112, end: 20241112
  7. ESLICARBAZEPINE ACETATE [Suspect]
     Active Substance: ESLICARBAZEPINE ACETATE
     Dosage: 1000 MG, QD
     Route: 048
     Dates: start: 20241113
  8. KEPPRA [Concomitant]
     Active Substance: LEVETIRACETAM
     Indication: Epilepsy
     Dosage: 1 DOSAGE FORM, BID
     Route: 048
     Dates: start: 20240513, end: 20241105
  9. KEPPRA [Concomitant]
     Active Substance: LEVETIRACETAM
     Dosage: 1 DOSAGE FORM, BID
     Route: 048
     Dates: start: 20240528
  10. KEPPRA [Concomitant]
     Active Substance: LEVETIRACETAM
     Route: 048
     Dates: start: 20240513, end: 20241105
  11. CLOBAZAM [Concomitant]
     Active Substance: CLOBAZAM
     Indication: Epilepsy
     Dosage: 5 MILLIGRAM, BID
     Route: 048
     Dates: start: 20240528, end: 20241104
  12. CLOBAZAM [Concomitant]
     Active Substance: CLOBAZAM
     Route: 048
     Dates: start: 20240528, end: 20241104
  13. MEDILAC DS [Concomitant]
     Indication: Gastritis
     Dosage: 1 DOSAGE FORM, BID
     Route: 048
     Dates: start: 20240528
  14. MEDILAC DS [Concomitant]
     Route: 048
     Dates: start: 20240528
  15. CYANOCOBALAMIN\PYRIDOXINE HYDROCHLORIDE\THIAMINE [Concomitant]
     Active Substance: CYANOCOBALAMIN\PYRIDOXINE HYDROCHLORIDE\THIAMINE
     Indication: Prophylaxis
     Dosage: 1 DOSAGE FORM, BID
     Route: 048
     Dates: start: 20240528
  16. CYANOCOBALAMIN\PYRIDOXINE HYDROCHLORIDE\THIAMINE [Concomitant]
     Active Substance: CYANOCOBALAMIN\PYRIDOXINE HYDROCHLORIDE\THIAMINE
     Route: 048
     Dates: start: 20240528
  17. GASTER [Concomitant]
     Active Substance: FAMOTIDINE
     Indication: Gastritis
     Dosage: 1 DOSAGE FORM, BID
     Route: 048
     Dates: start: 20240528
  18. GASTER [Concomitant]
     Active Substance: FAMOTIDINE
     Route: 048
     Dates: start: 20240528
  19. SOLONDO [Concomitant]
     Indication: Encephalitis
     Dosage: 1 DOSAGE FORM, BID
     Route: 048
     Dates: start: 20240528, end: 20240529
  20. SOLONDO [Concomitant]
     Dosage: 1 DOSAGE FORM, TID
     Route: 048
     Dates: start: 20240604, end: 20240703
  21. SOLONDO [Concomitant]
     Dosage: 1 DOSAGE FORM, BID
     Route: 048
     Dates: start: 20240704
  22. SOLONDO [Concomitant]
     Route: 048
     Dates: start: 20240528, end: 20240529
  23. SOLONDO [Concomitant]
     Route: 048
     Dates: start: 20240604, end: 20240703
  24. SOLONDO [Concomitant]
     Route: 048
     Dates: start: 20240704
  25. POLYBUTINE [Concomitant]
     Indication: Prophylaxis
     Dosage: 1 DOSAGE FORM, TID
     Route: 048
     Dates: start: 20240603
  26. POLYBUTINE [Concomitant]
     Route: 048
     Dates: start: 20240603
  27. RAMNOS [Concomitant]
     Indication: Prophylaxis
     Dosage: 1 DOSAGE FORM, BID
     Route: 048
     Dates: start: 20240528, end: 20240724
  28. RAMNOS [Concomitant]
     Dosage: 2 DOSAGE FORM, BID
     Route: 048
     Dates: start: 20240725
  29. RAMNOS [Concomitant]
     Route: 048
     Dates: start: 20240528, end: 20240724
  30. RAMNOS [Concomitant]
     Route: 048
     Dates: start: 20240725
  31. FERROUS SULFATE [Concomitant]
     Active Substance: FERROUS SULFATE
     Indication: Prophylaxis
     Dosage: 1 DOSAGE FORM, QD
     Route: 048
     Dates: start: 20240528, end: 20240813
  32. FERROUS SULFATE [Concomitant]
     Active Substance: FERROUS SULFATE
     Dosage: 1 DOSAGE FORM, BID
     Route: 048
     Dates: start: 20240814
  33. FERROUS SULFATE [Concomitant]
     Active Substance: FERROUS SULFATE
     Route: 048
     Dates: start: 20240814
  34. POLYETHYLENE GLYCOL 4000 [Concomitant]
     Active Substance: POLYETHYLENE GLYCOL 4000
     Indication: Prophylaxis
     Dosage: 1 DOSAGE FORM, QD
     Route: 048
     Dates: start: 20240528, end: 20240528
  35. POLYETHYLENE GLYCOL 4000 [Concomitant]
     Active Substance: POLYETHYLENE GLYCOL 4000
     Dosage: 1 DOSAGE FORM, BID
     Route: 048
     Dates: start: 20240529, end: 20240529
  36. POLYETHYLENE GLYCOL 4000 [Concomitant]
     Active Substance: POLYETHYLENE GLYCOL 4000
     Route: 048
     Dates: start: 20240529, end: 20240529
  37. CIRCATONIN PR [Concomitant]
     Indication: Prophylaxis
     Dosage: 1 DOSAGE FORM, QD
     Route: 048
     Dates: start: 20240530
  38. DEFLAZACORT [Concomitant]
     Active Substance: DEFLAZACORT
     Indication: Mitochondrial encephalomyopathy
     Dosage: 1 DOSAGE FORM, BID
     Route: 048
     Dates: start: 20240725
  39. DEFLAZACORT [Concomitant]
     Active Substance: DEFLAZACORT
     Route: 048
     Dates: start: 20240725
  40. DEXAMETHASONE [Concomitant]
     Active Substance: DEXAMETHASONE
     Indication: Mitochondrial cytopathy
     Route: 040
     Dates: start: 20240530, end: 20240531
  41. DEXAMETHASONE [Concomitant]
     Active Substance: DEXAMETHASONE
     Dosage: 1 DOSAGE FORM, TID
     Route: 040
     Dates: start: 20240601, end: 20240601
  42. DEXAMETHASONE [Concomitant]
     Active Substance: DEXAMETHASONE
     Dosage: 1 DOSAGE FORM, BID
     Route: 040
     Dates: start: 20240602, end: 20240602
  43. DEXAMETHASONE [Concomitant]
     Active Substance: DEXAMETHASONE
     Dosage: 1 DOSAGE FORM, QD
     Route: 040
     Dates: start: 20240603, end: 20240603
  44. DEXAMETHASONE [Concomitant]
     Active Substance: DEXAMETHASONE
     Route: 040
     Dates: start: 20240601, end: 20240601
  45. DEXAMETHASONE [Concomitant]
     Active Substance: DEXAMETHASONE
     Route: 040
     Dates: start: 20240602, end: 20240602
  46. VENOFERRUM [Concomitant]
     Indication: Prophylaxis
     Dosage: 0.85 DOSAGE FORM, QD
     Route: 040
     Dates: start: 20240813, end: 20240813
  47. VENOFERRUM [Concomitant]
     Dosage: 0.85 DOSAGE FORM, QD
     Route: 040
     Dates: start: 20240813, end: 20240813
  48. HYDROCORTISONE [Concomitant]
     Active Substance: HYDROCORTISONE
     Indication: Immunosuppression
     Route: 048
     Dates: start: 20240909
  49. SUDAFED [Concomitant]
     Active Substance: PSEUDOEPHEDRINE HYDROCHLORIDE
     Indication: Prophylaxis
     Dosage: 1 DOSAGE FORM, TID
     Route: 048
     Dates: start: 20241107
  50. SUDAFED [Concomitant]
     Active Substance: PSEUDOEPHEDRINE HYDROCHLORIDE
     Route: 048
     Dates: start: 20241107
  51. CAROL F [Concomitant]
     Indication: Prophylaxis
     Dosage: 1 DOSAGE FORM, TID
     Route: 048
     Dates: start: 20241107, end: 20241112
  52. CAROL F [Concomitant]
     Route: 048
     Dates: start: 20241107, end: 20241112
  53. MUCOPECT [Concomitant]
     Indication: Prophylaxis
     Dosage: 1 DOSAGE FORM, TID
     Route: 048
     Dates: start: 20241108
  54. MUCOPECT [Concomitant]
     Route: 048
     Dates: start: 20241108
  55. TASNA [Concomitant]
     Indication: Hyponatraemia
     Dosage: 1 DOSAGE FORM, TID
     Route: 048
     Dates: start: 20241116
  56. TASNA [Concomitant]
     Route: 048
     Dates: start: 20240112, end: 20240115
  57. FYCOMPA [Concomitant]
     Active Substance: PERAMPANEL
     Indication: Epilepsy
     Dosage: 1 DOSAGE FORM, QD
     Route: 048
     Dates: start: 20241116

REACTIONS (4)
  - Bronchitis [Recovered/Resolved]
  - Epilepsy [Recovered/Resolved]
  - Epilepsy [Recovered/Resolved]
  - Hyponatraemia [Recovered/Resolved]

NARRATIVE: CASE EVENT DATE: 20240810
